FAERS Safety Report 25960553 (Version 2)
Quarter: 2025Q4

REPORT INFORMATION
  Report Type: Spontaneous
  Country: US (occurrence: US)
  Receive Date: 20251027
  Receipt Date: 20251111
  Transmission Date: 20260118
  Serious: Yes (Other)
  Sender: ROCHE
  Company Number: US-ROCHE-10000411827

PATIENT
  Sex: Female
  Weight: 68.04 kg

DRUGS (2)
  1. RITUXAN [Suspect]
     Active Substance: RITUXIMAB
     Indication: Rheumatoid arthritis
     Route: 042
     Dates: start: 20241204
  2. RITUXAN [Suspect]
     Active Substance: RITUXIMAB
     Route: 042
     Dates: start: 20241217

REACTIONS (10)
  - Headache [Recovered/Resolved]
  - Blister [Unknown]
  - Bursitis [Unknown]
  - Atrial fibrillation [Unknown]
  - B-lymphocyte count decreased [Unknown]
  - Pruritus [Unknown]
  - Migraine [Unknown]
  - Arthralgia [Recovered/Resolved]
  - Dysstasia [Unknown]
  - Hypoacusis [Unknown]
